FAERS Safety Report 4702432-0 (Version None)
Quarter: 2005Q2

REPORT INFORMATION
  Report Type: 
  Country: None (occurrence: None)
  Receive Date: 20050629
  Receipt Date: 20050627
  Transmission Date: 20051028
  Serious: Yes (Hospitalization)
  Sender: FDA-Public Use
  Company Number: US-BRISTOL-MYERS SQUIBB COMPANY-13016688

PATIENT
  Age: 72 Year
  Sex: Female

DRUGS (5)
  1. CETUXIMAB [Suspect]
     Indication: COLORECTAL CANCER METASTATIC
     Dosage: DOSE DELAYED/OMITTED.
     Route: 042
     Dates: start: 20050603, end: 20050603
  2. IRINOTECAN [Suspect]
     Indication: COLORECTAL CANCER METASTATIC
     Dosage: DOSE DELAYED/OMITTED.
     Route: 042
     Dates: start: 20050603, end: 20050603
  3. ALDACTONE [Concomitant]
     Dates: end: 20050610
  4. LOMOTIL [Concomitant]
     Dates: start: 20050217
  5. MORPHINE [Concomitant]
     Dates: start: 20050323

REACTIONS (2)
  - DIARRHOEA [None]
  - HYPERKALAEMIA [None]
